FAERS Safety Report 24241874 (Version 2)
Quarter: 2024Q3

REPORT INFORMATION
  Report Type: Spontaneous
  Country: US (occurrence: US)
  Receive Date: 20240823
  Receipt Date: 20240918
  Transmission Date: 20241017
  Serious: No
  Sender: Haleon PLC
  Company Number: US-HALEON-2193307

PATIENT

DRUGS (1)
  1. ALLI [Suspect]
     Active Substance: ORLISTAT
     Indication: Product used for unknown indication
     Dosage: EXPDATE:20260531

REACTIONS (4)
  - Drug effect less than expected [Unknown]
  - Product complaint [Unknown]
  - Product counterfeit [Unknown]
  - Counterfeit product administered [Unknown]
